FAERS Safety Report 13390173 (Version 1)
Quarter: 2017Q1

REPORT INFORMATION
  Report Type: Spontaneous
  Country: US (occurrence: US)
  Receive Date: 20170331
  Receipt Date: 20170331
  Transmission Date: 20170429
  Serious: No
  Sender: FDA-Public Use
  Company Number: US-ASTRAZENECA-2017SE30861

PATIENT
  Age: 770 Month
  Sex: Female
  Weight: 88.5 kg

DRUGS (13)
  1. VITAMINE B SHOT [Concomitant]
  2. ESTRADIOL. [Concomitant]
     Active Substance: ESTRADIOL
     Indication: HORMONE THERAPY
     Route: 048
  3. TYLENOL WITH CODEINE [Concomitant]
     Active Substance: ACETAMINOPHEN\CODEINE PHOSPHATE
     Indication: MIGRAINE
     Route: 048
  4. MAGNESIUM CHELATE [Concomitant]
     Active Substance: MAGNESIUM
     Indication: STRESS
     Route: 048
  5. VITAMINE D2 [Concomitant]
     Dosage: 1.25MG UNKNOWN
     Route: 048
  6. SEROQUEL [Suspect]
     Active Substance: QUETIAPINE FUMARATE
     Indication: SLEEP DISORDER
     Route: 048
     Dates: start: 201609, end: 20170320
  7. B12 COMPLEX [Concomitant]
     Indication: STRESS
     Route: 048
  8. MULTIVITAMIN [Concomitant]
     Active Substance: VITAMINS
     Indication: STRESS
     Route: 048
  9. SEROQUEL [Suspect]
     Active Substance: QUETIAPINE FUMARATE
     Indication: DEPRESSION
     Route: 048
     Dates: start: 201609, end: 20170320
  10. RIZATRIPTAN. [Concomitant]
     Active Substance: RIZATRIPTAN
     Indication: MIGRAINE
     Dosage: 10.0MG AS REQUIRED
     Route: 048
  11. XANAX [Concomitant]
     Active Substance: ALPRAZOLAM
     Indication: DEPRESSION
     Dosage: 0.5MG UNKNOWN
     Route: 048
  12. CYMBALTA [Concomitant]
     Active Substance: DULOXETINE HYDROCHLORIDE
     Indication: DEPRESSION
     Route: 048
  13. METHADONE [Concomitant]
     Active Substance: METHADONE HYDROCHLORIDE
     Indication: ACCIDENT
     Dosage: 10.0MG UNKNOWN
     Route: 048
     Dates: start: 2001

REACTIONS (4)
  - Mouth ulceration [Not Recovered/Not Resolved]
  - Tongue ulceration [Not Recovered/Not Resolved]
  - Tongue disorder [Not Recovered/Not Resolved]
  - Temporomandibular joint syndrome [Unknown]

NARRATIVE: CASE EVENT DATE: 201609
